FAERS Safety Report 19966314 (Version 1)
Quarter: 2021Q4

REPORT INFORMATION
  Report Type: Spontaneous
  Country: GB (occurrence: GB)
  Receive Date: 20211019
  Receipt Date: 20211019
  Transmission Date: 20220303
  Serious: Yes (Hospitalization)
  Sender: FDA-Public Use
  Company Number: GB-MHRA-MIDB-C19DFB4E-321E-4A6A-B977-D7FEF0CA7A20

PATIENT
  Age: 76 Year
  Sex: Female

DRUGS (8)
  1. AMLODIPINE [Suspect]
     Active Substance: AMLODIPINE BESYLATE
     Indication: Product used for unknown indication
     Dosage: 5 MILLIGRAM, ONCE A DAY
     Route: 065
     Dates: start: 20210511, end: 20210524
  2. FELODIPINE [Concomitant]
     Active Substance: FELODIPINE
     Indication: Product used for unknown indication
     Dosage: UNK
     Route: 065
  3. HYDROXYCHLOROQUINE [Concomitant]
     Active Substance: HYDROXYCHLOROQUINE
     Indication: Sjogren^s syndrome
     Dosage: 200 MILLIGRAM, ONCE A DAY
     Route: 065
     Dates: start: 20210511
  4. HYPROMELLOSES [Concomitant]
     Active Substance: HYPROMELLOSES
     Indication: Sjogren^s syndrome
     Dosage: UNK (1 DROP PER EYE AS REQUIRED)
     Route: 065
     Dates: start: 20210212
  5. FLUTICASONE FUROATE [Concomitant]
     Active Substance: FLUTICASONE FUROATE
     Indication: Product used for unknown indication
     Dosage: UNK (27.5UG/DOSE. 2 SPRAYS IN EACH NOSTRIL OD. REDUCE TO ONE SPRAY IN EACH NOSTRIL OD ONCE CONTROL)
     Route: 065
  6. Rinatec [Concomitant]
     Indication: Product used for unknown indication
     Dosage: 84 MICROGRAM, TWO TIMES A DAY (TWO SPRAYS IN EACH NOSTRIL.  NOT USING)
     Route: 065
  7. SARS Vaccine [Concomitant]
     Indication: COVID-19 immunisation
     Dosage: UNK (DOSE 2)
     Route: 065
     Dates: start: 20210423, end: 20210423
  8. ACETAMINOPHEN [Concomitant]
     Active Substance: ACETAMINOPHEN
     Indication: Product used for unknown indication
     Dosage: UNK (2 THREE TIMES DAILY TO FOUR TIMES DAILY AS REQUIRED)
     Route: 065

REACTIONS (4)
  - Peripheral swelling [Recovered/Resolved]
  - Headache [Unknown]
  - Nausea [Unknown]
  - Paraesthesia [Unknown]
